FAERS Safety Report 17336586 (Version 2)
Quarter: 2020Q1

REPORT INFORMATION
  Report Type: Spontaneous
  Country: CA (occurrence: CA)
  Receive Date: 20200128
  Receipt Date: 20200206
  Transmission Date: 20200409
  Serious: Yes (Hospitalization)
  Sender: FDA-Public Use
  Company Number: CA-CELGENEUS-CAN-20200107519

PATIENT
  Sex: Female

DRUGS (1)
  1. REVLIMID [Suspect]
     Active Substance: LENALIDOMIDE
     Indication: PLASMA CELL MYELOMA
     Dosage: 15 MILLIGRAM
     Route: 048
     Dates: start: 20191216, end: 20200108

REACTIONS (7)
  - International normalised ratio increased [Unknown]
  - Diarrhoea [Unknown]
  - Pain [Unknown]
  - Constipation [Unknown]
  - Cough [Unknown]
  - Muscle spasms [Unknown]
  - Asthenia [Unknown]
